FAERS Safety Report 21380469 (Version 2)
Quarter: 2022Q4

REPORT INFORMATION
  Report Type: Spontaneous
  Country: CA (occurrence: CA)
  Receive Date: 20220927
  Receipt Date: 20221012
  Transmission Date: 20230113
  Serious: Yes (Other)
  Sender: FDA-Public Use
  Company Number: CA-JNJFOC-20220945072

PATIENT
  Age: 28 Year
  Sex: Female

DRUGS (4)
  1. STELARA [Suspect]
     Active Substance: USTEKINUMAB
     Indication: Crohn^s disease
     Route: 058
  2. VAXZEVRIA [Suspect]
     Active Substance: AZD-1222
     Indication: Immunisation
     Dosage: VIAL CONTAINS 10 DOSES OF 0.5ML
     Route: 030
  3. VAXZEVRIA [Suspect]
     Active Substance: AZD-1222
     Dosage: VIAL CONTAINS 10 DOSES OF 0.5ML
     Route: 030
  4. VAXZEVRIA [Suspect]
     Active Substance: AZD-1222
     Dosage: VIAL CONTAINS 10 DOSES OF 0.5ML
     Route: 030

REACTIONS (3)
  - Crohn^s disease [Not Recovered/Not Resolved]
  - Arthropathy [Not Recovered/Not Resolved]
  - Drug ineffective [Not Recovered/Not Resolved]
